FAERS Safety Report 9635132 (Version 2)
Quarter: 2013Q4

REPORT INFORMATION
  Report Type: Spontaneous
  Country: US (occurrence: US)
  Receive Date: 20131021
  Receipt Date: 20131021
  Transmission Date: 20140711
  Serious: Yes (Hospitalization, Other)
  Sender: FDA-Public Use
  Company Number: US-DENDREON CORPORATION-2013PROUSA03075

PATIENT
  Age: 57 Year
  Sex: Male
  Weight: 96.5 kg

DRUGS (3)
  1. PROVENGE [Suspect]
     Indication: PROSTATE CANCER METASTATIC
     Dosage: 250 ML, SINGLE
     Route: 042
     Dates: start: 20130719, end: 20130719
  2. PROVENGE [Suspect]
     Dosage: 250 ML, SINGLE
     Route: 042
     Dates: start: 20130802, end: 20130802
  3. PROVENGE [Suspect]
     Dosage: 250 ML, SINGLE
     Route: 042
     Dates: start: 20130916, end: 20130916

REACTIONS (3)
  - Tachycardia [Recovered/Resolved]
  - Pyrexia [Recovered/Resolved]
  - Chills [Unknown]
